FAERS Safety Report 6710118-6 (Version None)
Quarter: 2010Q2

REPORT INFORMATION
  Report Type: 
  Country: None (occurrence: None)
  Receive Date: 20100430
  Receipt Date: 20100416
  Transmission Date: 20101027
  Serious: Yes (Other)
  Sender: FDA-Public Use
  Company Number: 1-21941411

PATIENT
  Sex: Female
  Weight: 47.6277 kg

DRUGS (8)
  1. CLOTRIMAZOLE AND BETAMETHASONE DIPROPIONATE [Suspect]
     Indication: DERMATOSIS
     Dosage: PEA-SIZE AMOUNT, 2X/DAY, TOPICAL
     Route: 061
     Dates: start: 20080101, end: 20091117
  2. CLOBETASOL PROPIONATE [Suspect]
     Indication: DERMATOSIS
     Dosage: TOPICAL
     Route: 061
     Dates: start: 20090722, end: 20091117
  3. VITAMIN D [Concomitant]
  4. BENADRYL [Concomitant]
  5. TYLENOL #3 (ACETAMINOPHEN AND CODEINE) [Concomitant]
  6. ESTRACE [Concomitant]
     Indication: DERMATOSIS
  7. TRIAMCINOLONE ACETONIDE [Suspect]
     Indication: VULVOVAGINAL DISCOMFORT
     Dosage: TOPICAL
     Route: 061
     Dates: start: 20090101
  8. TRIAMCINOLONE ACETONIDE (NASACORT AQ) [Suspect]
     Indication: VULVOVAGINAL DISCOMFORT
     Dosage: TOPICAL
     Route: 061
     Dates: start: 20090101

REACTIONS (17)
  - ALOPECIA [None]
  - DIZZINESS [None]
  - DRY SKIN [None]
  - EYE DISCHARGE [None]
  - HAIR GROWTH ABNORMAL [None]
  - INSOMNIA [None]
  - ORAL INFECTION [None]
  - PRURITUS GENERALISED [None]
  - QUALITY OF LIFE DECREASED [None]
  - SKIN EXFOLIATION [None]
  - SKIN INFECTION [None]
  - SUICIDAL IDEATION [None]
  - SWELLING [None]
  - SWELLING FACE [None]
  - TOOTH INFECTION [None]
  - VISION BLURRED [None]
  - VULVITIS [None]
